FAERS Safety Report 20539121 (Version 1)
Quarter: 2022Q1

REPORT INFORMATION
  Report Type: Spontaneous
  Country: DE (occurrence: DE)
  Receive Date: 20220302
  Receipt Date: 20220302
  Transmission Date: 20220423
  Serious: Yes (Other)
  Sender: FDA-Public Use
  Company Number: DE-MLMSERVICE-20220214-3370706-1

PATIENT
  Age: 51 Year
  Sex: Male

DRUGS (1)
  1. CYCLOSPORINE [Suspect]
     Active Substance: CYCLOSPORINE
     Indication: Large granular lymphocytosis
     Dosage: UNK, UNK
     Route: 065
     Dates: start: 202005

REACTIONS (2)
  - Hypertension [Unknown]
  - Neuromyopathy [Unknown]

NARRATIVE: CASE EVENT DATE: 20200101
